FAERS Safety Report 5897585-5 (Version None)
Quarter: 2008Q3

REPORT INFORMATION
  Report Type: 
  Country: None (occurrence: None)
  Receive Date: 20080829
  Receipt Date: 20080703
  Transmission Date: 20090109
  Serious: Yes (Other)
  Sender: FDA-Public Use
  Company Number: PHEH2008US04871

PATIENT
  Age: 2 Year
  Sex: Male
  Weight: 29 kg

DRUGS (7)
  1. EXJADE [Suspect]
     Indication: IRON OVERLOAD
     Dosage: 250 MG DAILY
     Dates: start: 20080301, end: 20080527
  2. AMOXICILLIN [Concomitant]
  3. BACTRIM [Concomitant]
  4. AZITHROMYCIN [Concomitant]
  5. LASIX [Concomitant]
  6. PREVACID [Concomitant]
  7. PROPRANOLOL [Concomitant]

REACTIONS (2)
  - ALANINE AMINOTRANSFERASE INCREASED [None]
  - ASPARTATE AMINOTRANSFERASE INCREASED [None]
